FAERS Safety Report 8375926-7 (Version None)
Quarter: 2012Q2

REPORT INFORMATION
  Report Type: 
  Country: None (occurrence: None)
  Receive Date: 20120522
  Receipt Date: 20120511
  Transmission Date: 20120825
  Serious: Yes (Life-Threatening, Hospitalization, Other)
  Sender: FDA-Public Use
  Company Number: FR-BRISTOL-MYERS SQUIBB COMPANY-16590093

PATIENT
  Age: 83 Year
  Sex: Male

DRUGS (3)
  1. COUMADIN [Suspect]
     Indication: ATRIAL FIBRILLATION
     Dosage: 1 DF: 1 UNIT NOS
     Route: 048
     Dates: end: 20120429
  2. HYDREA [Concomitant]
     Indication: POLYCYTHAEMIA
     Dosage: 1 DF; 1 UNIT NOS
  3. SINEMET [Concomitant]
     Indication: PARKINSON'S DISEASE
     Dosage: 100 5/D  2-2-1

REACTIONS (5)
  - INTERNATIONAL NORMALISED RATIO INCREASED [None]
  - FALL [None]
  - ANAEMIA [None]
  - SHOCK HAEMORRHAGIC [None]
  - RETROPERITONEAL HAEMATOMA [None]
